FAERS Safety Report 22192298 (Version 1)
Quarter: 2023Q2

REPORT INFORMATION
  Report Type: Spontaneous
  Country: US (occurrence: None)
  Receive Date: 20230409
  Receipt Date: 20230409
  Transmission Date: 20230722
  Serious: Yes (Life-Threatening, Hospitalization)
  Sender: FDA-Public Use
  Company Number: None

PATIENT
  Age: 9 Year
  Sex: Male
  Weight: 47.25 kg

DRUGS (1)
  1. MONTELUKAST SODIUM [Suspect]
     Active Substance: MONTELUKAST SODIUM
     Indication: Asthma
     Dates: start: 20171205, end: 20200315

REACTIONS (17)
  - Social avoidant behaviour [None]
  - Aggression [None]
  - Aggression [None]
  - Mood swings [None]
  - Nightmare [None]
  - Hallucination, auditory [None]
  - Palpitations [None]
  - Panic attack [None]
  - Fine motor skill dysfunction [None]
  - Coordination abnormal [None]
  - Dysgraphia [None]
  - Depression [None]
  - Anxiety [None]
  - Obsessive-compulsive disorder [None]
  - Anger [None]
  - Suicidal ideation [None]
  - Neurotransmitter level altered [None]

NARRATIVE: CASE EVENT DATE: 20221001
